FAERS Safety Report 8676244 (Version 2)
Quarter: 2013Q4

REPORT INFORMATION
  Report Type: Report from Study
  Country: US (occurrence: US)
  Receive Date: 20120720
  Receipt Date: 20131101
  Transmission Date: 20140711
  Serious: No
  Sender: FDA-Public Use
  Company Number: US-009507513-1207USA000896

PATIENT
  Age: 59 Year
  Sex: Female

DRUGS (9)
  1. BOCEPREVIR [Suspect]
     Indication: HEPATITIS C
     Dosage: 800 MG, TID
     Route: 048
  2. RIBAVIRIN [Suspect]
     Indication: HEPATITIS C
  3. PEGASYS [Suspect]
     Indication: HEPATITIS C
  4. ATIVAN [Concomitant]
  5. LEVOTHROID [Concomitant]
  6. LEXAPRO [Concomitant]
  7. CALCIUM (UNSPECIFIED) [Concomitant]
  8. NORCO [Concomitant]
  9. ZEGERID [Concomitant]

REACTIONS (1)
  - Blood disorder [Unknown]
